FAERS Safety Report 12136786 (Version 1)
Quarter: 2016Q1

REPORT INFORMATION
  Report Type: Spontaneous
  Country: US (occurrence: None)
  Receive Date: 20160301
  Receipt Date: 20160301
  Transmission Date: 20160526
  Serious: No
  Sender: FDA-Public Use
  Company Number: None

PATIENT
  Age: 27 Year
  Sex: Female
  Weight: 59.42 kg

DRUGS (12)
  1. GINKO BILOBA [Concomitant]
     Active Substance: GINKGO
  2. IBUPROFEN. [Concomitant]
     Active Substance: IBUPROFEN
  3. VITAMIN D3 [Concomitant]
     Active Substance: CHOLECALCIFEROL
  4. NAPROXEN. [Concomitant]
     Active Substance: NAPROXEN
  5. HERBAL TEA [Concomitant]
  6. PARAGARD T 380A [Suspect]
     Active Substance: COPPER
     Indication: CONTRACEPTION
     Dosage: ONETIME VAGINAL
     Route: 067
  7. ADDERALL [Concomitant]
     Active Substance: AMPHETAMINE ASPARTATE\AMPHETAMINE SULFATE\DEXTROAMPHETAMINE SACCHARATE\DEXTROAMPHETAMINE SULFATE
  8. BIOTIN WITH VITAMINS A, C [Concomitant]
  9. MULTIVITAMINS [Concomitant]
     Active Substance: VITAMINS
  10. CALCIUM [Concomitant]
     Active Substance: CALCIUM
  11. ST. JOHNS WORT [Concomitant]
     Active Substance: HYPERICUM PERFORATUM
  12. GINSENG [Concomitant]
     Active Substance: ASIAN GINSENG

REACTIONS (16)
  - Procedural pain [None]
  - Anxiety [None]
  - Fatigue [None]
  - Impaired driving ability [None]
  - Sleep disorder [None]
  - Menorrhagia [None]
  - Dyspareunia [None]
  - Memory impairment [None]
  - Mood swings [None]
  - Syncope [None]
  - Premenstrual cramps [None]
  - Depression [None]
  - Abdominal pain lower [None]
  - Back pain [None]
  - Disturbance in attention [None]
  - Irritability [None]

NARRATIVE: CASE EVENT DATE: 20140620
